FAERS Safety Report 10713451 (Version 5)
Quarter: 2015Q2

REPORT INFORMATION
  Report Type: Spontaneous
  Country: US (occurrence: US)
  Receive Date: 20150115
  Receipt Date: 20150617
  Transmission Date: 20150821
  Serious: Yes (Hospitalization, Other)
  Sender: FDA-Public Use
  Company Number: US-009507513-1105USA02554

PATIENT
  Sex: Female
  Weight: 70.3 kg

DRUGS (6)
  1. FOSAMAX PLUS D [Suspect]
     Active Substance: ALENDRONATE SODIUM\CHOLECALCIFEROL
     Indication: BONE DENSITY DECREASED
     Dosage: 70 MG, UNK
     Route: 048
     Dates: start: 1999, end: 20050510
  2. PREMARIN [Concomitant]
     Active Substance: ESTROGENS, CONJUGATED
     Dosage: 0.625 MG, QD
  3. FOSAMAX [Suspect]
     Active Substance: ALENDRONATE SODIUM
     Indication: OSTEOPOROSIS
     Dosage: 70 MG, QW
     Route: 048
     Dates: start: 1999, end: 20090602
  4. SYNTHROID [Concomitant]
     Active Substance: LEVOTHYROXINE SODIUM
     Dosage: 0.1 MG, QD
     Dates: start: 19951102
  5. ALENDRONATE SODIUM. [Suspect]
     Active Substance: ALENDRONATE SODIUM
     Indication: BONE DENSITY DECREASED
     Dosage: 70 MG, QW
     Route: 048
     Dates: start: 20090120, end: 20150129
  6. FOSAMAX [Suspect]
     Active Substance: ALENDRONATE SODIUM
     Indication: BONE DENSITY DECREASED
     Dosage: 10 MG, QAM
     Route: 048
     Dates: start: 19951102, end: 2005

REACTIONS (36)
  - Intramedullary rod insertion [Unknown]
  - Femur fracture [Recovered/Resolved]
  - Stress fracture [Unknown]
  - Poor quality sleep [Unknown]
  - Peptic ulcer [Unknown]
  - Diverticulum intestinal [Unknown]
  - Sinus tachycardia [Unknown]
  - Drug ineffective [Unknown]
  - Diarrhoea [Recovered/Resolved]
  - Urinary retention [Unknown]
  - Breast cancer [Unknown]
  - Impaired healing [Unknown]
  - Hyperlipidaemia [Unknown]
  - Body temperature increased [Unknown]
  - Myositis [Unknown]
  - Asthenia [Unknown]
  - Drug ineffective [Unknown]
  - Femur fracture [Recovered/Resolved]
  - Fall [Unknown]
  - Appendicitis perforated [Unknown]
  - Urinary tract infection [Recovered/Resolved]
  - Osteoarthritis [Unknown]
  - Gastrointestinal disorder [Unknown]
  - Urinary tract infection [Unknown]
  - Malnutrition [Recovering/Resolving]
  - Ventricular extrasystoles [Unknown]
  - Open reduction of fracture [Unknown]
  - Bursitis [Unknown]
  - Chest discomfort [Unknown]
  - Osteopenia [Unknown]
  - Acetabulum fracture [Unknown]
  - Tendonitis [Unknown]
  - Anaemia postoperative [Unknown]
  - Nausea [Unknown]
  - Abscess [Unknown]
  - Gastrooesophageal reflux disease [Unknown]

NARRATIVE: CASE EVENT DATE: 19951201
